FAERS Safety Report 8917082 (Version 1)
Quarter: 2012Q4

REPORT INFORMATION
  Report Type: 
  Country: IL (occurrence: IL)
  Receive Date: 20121120
  Receipt Date: 20121120
  Transmission Date: 20130627
  Serious: Yes (Other)
  Sender: FDA-Public Use
  Company Number: IL-AMGEN-ISRSP2012073727

PATIENT
  Sex: Male

DRUGS (1)
  1. NPLATE [Suspect]
     Indication: PRODUCT USED FOR UNKNOWN INDICATION
     Dosage: 1 mug/kg (17 mcg), UNK
     Dates: start: 20121101

REACTIONS (3)
  - Vomiting [Unknown]
  - Headache [Recovered/Resolved]
  - Dizziness [Unknown]
